FAERS Safety Report 10374532 (Version 3)
Quarter: 2014Q3

REPORT INFORMATION
  Report Type: Spontaneous
  Country: IT (occurrence: IT)
  Receive Date: 20140811
  Receipt Date: 20140814
  Transmission Date: 20150326
  Serious: Yes (Other)
  Sender: FDA-Public Use
  Company Number: IT-RANBAXY-2014RR-84200

PATIENT
  Age: 25 Year
  Sex: Female

DRUGS (6)
  1. AULIN [Suspect]
     Active Substance: NIMESULIDE
     Indication: DRUG ABUSE
     Dosage: 200 MG COMPLETE
     Route: 048
     Dates: start: 20131214, end: 20131214
  2. XANAX [Suspect]
     Active Substance: ALPRAZOLAM
     Indication: DRUG ABUSE
     Dosage: 8 DF COMPLETE
     Route: 048
     Dates: start: 20131214, end: 20131214
  3. PLASIL [Suspect]
     Active Substance: METOCLOPRAMIDE HYDROCHLORIDE
     Indication: DRUG ABUSE
     Dosage: 1 DF COMPLETE
     Route: 048
     Dates: start: 20131214, end: 20131214
  4. PARACETAMOL [Suspect]
     Active Substance: ACETAMINOPHEN
     Indication: DRUG ABUSE
     Dosage: 4 DF COMPLETE (TABLET)
     Route: 048
     Dates: start: 20131214, end: 20131214
  5. NERVAXON [Suspect]
     Active Substance: ASCORBIC ACID\VITAMIN B COMPLEX
     Indication: DRUG ABUSE
     Dosage: 4 DF COMPLETE
     Route: 048
     Dates: start: 20131214, end: 20131214
  6. LUCEN [Suspect]
     Active Substance: ESOMEPRAZOLE
     Indication: DRUG ABUSE
     Dosage: 1 DF WEEKLY
     Route: 048
     Dates: start: 20131214, end: 20131214

REACTIONS (2)
  - Drug abuse [Recovering/Resolving]
  - Depressed level of consciousness [Recovering/Resolving]

NARRATIVE: CASE EVENT DATE: 20131214
